FAERS Safety Report 4951385-9 (Version None)
Quarter: 2006Q1

REPORT INFORMATION
  Report Type: 
  Country: None (occurrence: None)
  Receive Date: 20060317
  Receipt Date: 20060314
  Transmission Date: 20060701
  Serious: Yes (Hospitalization)
  Sender: FDA-Public Use
  Company Number: TCI2005A04873

PATIENT
  Age: 45 Year
  Sex: Female

DRUGS (1)
  1. LEUPROLIDE ACETATE [Suspect]
     Indication: OVARIAN CYST
     Dosage: 1.88 MG (1.88 MG, 1 IN 28 D)
     Route: 058
     Dates: start: 20050921, end: 20051128

REACTIONS (9)
  - ARTERIOSCLEROSIS [None]
  - HYPERTENSION [None]
  - IRON DEFICIENCY ANAEMIA [None]
  - LEUKOPENIA [None]
  - PERIPHERAL VASCULAR DISORDER [None]
  - RETINAL HAEMORRHAGE [None]
  - RETINAL VEIN OCCLUSION [None]
  - TREATMENT NONCOMPLIANCE [None]
  - VISUAL ACUITY REDUCED [None]
